FAERS Safety Report 8005315-6 (Version None)
Quarter: 2011Q4

REPORT INFORMATION
  Report Type: 
  Country: None (occurrence: None)
  Receive Date: 20111223
  Receipt Date: 20111216
  Transmission Date: 20120403
  Serious: Yes (Other)
  Sender: FDA-Public Use
  Company Number: RO-MUTUAL PHARMACEUTICAL COMPANY, INC.-CLHC20110054

PATIENT
  Sex: Male

DRUGS (5)
  1. COLCHICINE [Suspect]
     Route: 065
  2. P-GLYCOPROTEIN INHIBITOR [Concomitant]
     Indication: PRODUCT USED FOR UNKNOWN INDICATION
     Route: 065
  3. COLCHICINE [Suspect]
     Indication: GOUT
     Route: 065
  4. UNSPECIFIED MEDICATIONS [Concomitant]
     Indication: PRODUCT USED FOR UNKNOWN INDICATION
     Route: 065
  5. COLCHICINE [Suspect]
     Route: 065

REACTIONS (4)
  - RENAL FAILURE [None]
  - DYSURIA [None]
  - DIARRHOEA [None]
  - MALAISE [None]
